FAERS Safety Report 17365587 (Version 1)
Quarter: 2020Q1

REPORT INFORMATION
  Report Type: Report from Study
  Country: US (occurrence: US)
  Receive Date: 20200204
  Receipt Date: 20200204
  Transmission Date: 20200409
  Serious: Yes (Hospitalization)
  Sender: FDA-Public Use
  Company Number: US-ROCHE-2533226

PATIENT
  Age: 47 Year
  Sex: Male
  Weight: 120 kg

DRUGS (32)
  1. VALGANCICLOVIR. [Concomitant]
     Active Substance: VALGANCICLOVIR
     Dosage: ONGOING
     Route: 065
     Dates: start: 20190125
  2. NYSTATIN. [Concomitant]
     Active Substance: NYSTATIN
     Dosage: ONGOING
     Route: 065
     Dates: start: 20180125
  3. SODIUM CHLORIDE 0.9% [Concomitant]
     Active Substance: SODIUM CHLORIDE
     Route: 065
     Dates: start: 20190125
  4. ACETAMINOPHEN. [Concomitant]
     Active Substance: ACETAMINOPHEN
  5. LASIX [Concomitant]
     Active Substance: FUROSEMIDE
     Route: 065
     Dates: start: 20190125
  6. TACROLIMUS. [Suspect]
     Active Substance: TACROLIMUS
     Route: 048
     Dates: end: 20190212
  7. FAMOTIDINE. [Concomitant]
     Active Substance: FAMOTIDINE
     Route: 048
     Dates: start: 20190125, end: 20190321
  8. SEPTRA [Concomitant]
     Active Substance: SULFAMETHOXAZOLE\TRIMETHOPRIM
  9. BISCODYL [Concomitant]
     Active Substance: BISACODYL
  10. ATORVASTATIN [Concomitant]
     Active Substance: ATORVASTATIN
     Dosage: ONGOING
     Route: 065
     Dates: start: 20190125
  11. HYDROMORPHONE [Concomitant]
     Active Substance: HYDROMORPHONE
  12. PREDNISOLONE. [Suspect]
     Active Substance: PREDNISOLONE
     Route: 048
  13. NALOXEGOL [Concomitant]
     Active Substance: NALOXEGOL
     Route: 065
     Dates: start: 20190125
  14. DIAZEPAM. [Concomitant]
     Active Substance: DIAZEPAM
     Route: 065
     Dates: start: 20190124
  15. SODIUM BICARBONATE. [Concomitant]
     Active Substance: SODIUM BICARBONATE
     Route: 065
     Dates: start: 20190124
  16. BELLADONNA [Concomitant]
     Active Substance: ATROPA BELLADONNA\HOMEOPATHICS
  17. GABAPENTIN. [Concomitant]
     Active Substance: GABAPENTIN
     Route: 065
  18. METHYLPREDNISOLONE. [Suspect]
     Active Substance: METHYLPREDNISOLONE
     Indication: IMMUNOSUPPRESSION
     Route: 042
     Dates: start: 20190124
  19. DOCUSATE;SENNOSIDE B [Concomitant]
     Route: 065
     Dates: start: 20190126
  20. ALTEPLASE. [Concomitant]
     Active Substance: ALTEPLASE
     Route: 065
  21. TACROLIMUS. [Suspect]
     Active Substance: TACROLIMUS
     Indication: IMMUNOSUPPRESSION
     Route: 048
     Dates: start: 20190125
  22. BASILIXIMAB [Suspect]
     Active Substance: BASILIXIMAB
     Indication: IMMUNOSUPPRESSION
     Dosage: UNKNOWN FREQUENCY (REPORTED AS IN OR AND POD4)
     Route: 042
     Dates: start: 20190124, end: 20190128
  23. PREDNISOLONE. [Suspect]
     Active Substance: PREDNISOLONE
     Indication: IMMUNOSUPPRESSION
     Route: 048
  24. BLESELUMAB [Suspect]
     Active Substance: BLESELUMAB
     Indication: IMMUNOSUPPRESSION
     Route: 042
     Dates: start: 20190124, end: 20190129
  25. ELIQUIS [Concomitant]
     Active Substance: APIXABAN
     Route: 065
  26. TACROLIMUS. [Suspect]
     Active Substance: TACROLIMUS
     Route: 048
     Dates: start: 20190215
  27. CALCIUM GLUCONATE. [Concomitant]
     Active Substance: CALCIUM GLUCONATE
  28. HYDROCODONE/ACETAMINOPHEN [Concomitant]
     Active Substance: ACETAMINOPHEN\HYDROCODONE
  29. MYCOPHENOLATE MOFETIL. [Suspect]
     Active Substance: MYCOPHENOLATE MOFETIL
     Indication: IMMUNOSUPPRESSION
     Route: 048
     Dates: start: 20190130
  30. MYCOPHENOLATE MOFETIL. [Suspect]
     Active Substance: MYCOPHENOLATE MOFETIL
     Route: 048
     Dates: start: 20190215
  31. PREDNISOLONE. [Suspect]
     Active Substance: PREDNISOLONE
     Route: 048
  32. THYMOGLOBULINE [Concomitant]
     Active Substance: LAPINE T-LYMPHOCYTE IMMUNE GLOBULIN

REACTIONS (3)
  - Diarrhoea [Recovered/Resolved]
  - Focal segmental glomerulosclerosis [Recovered/Resolved]
  - Dehydration [Recovered/Resolved]

NARRATIVE: CASE EVENT DATE: 20190127
